FAERS Safety Report 24241981 (Version 2)
Quarter: 2024Q3

REPORT INFORMATION
  Report Type: Report from Study
  Country: US (occurrence: US)
  Receive Date: 20240823
  Receipt Date: 20240920
  Transmission Date: 20241017
  Serious: Yes (Death, Hospitalization, Other)
  Sender: ACCORD
  Company Number: US-Accord-441671

PATIENT
  Age: 64 Year
  Sex: Male

DRUGS (1)
  1. CLOZAPINE [Suspect]
     Active Substance: CLOZAPINE
     Indication: Product used for unknown indication
     Route: 048

REACTIONS (3)
  - Neutrophilia [Unknown]
  - Hospitalisation [Unknown]
  - Death [Fatal]

NARRATIVE: CASE EVENT DATE: 20240809
